FAERS Safety Report 6469894-2 (Version None)
Quarter: 2009Q4

REPORT INFORMATION
  Report Type: 
  Country: None (occurrence: None)
  Receive Date: 20091203
  Receipt Date: 20071203
  Transmission Date: 20100525
  Serious: Yes (Hospitalization)
  Sender: FDA-Public Use
  Company Number: US-ELI_LILLY_AND_COMPANY-US200711003307

PATIENT
  Sex: Female
  Weight: 90.703 kg

DRUGS (4)
  1. BYETTA [Suspect]
     Indication: TYPE 2 DIABETES MELLITUS
     Dosage: 5 UG, 2/D
     Route: 058
     Dates: start: 20070201
  2. METFORMIN HCL [Concomitant]
     Dosage: UNK, DAILY (1/D)
     Dates: start: 20060101
  3. MAALOX /USA/ [Concomitant]
     Dosage: UNK, UNK
     Dates: start: 20010101
  4. PREVACID [Concomitant]
     Dosage: UNK, UNK
     Dates: start: 20010101

REACTIONS (6)
  - ABDOMINAL PAIN [None]
  - NAUSEA [None]
  - NON-CARDIAC CHEST PAIN [None]
  - PAIN IN EXTREMITY [None]
  - PERIPHERAL VASCULAR DISORDER [None]
  - WEIGHT DECREASED [None]
